FAERS Safety Report 5984337-0 (Version None)
Quarter: 2008Q4

REPORT INFORMATION
  Report Type: 
  Country: None (occurrence: None)
  Receive Date: 20081208
  Receipt Date: 20081201
  Transmission Date: 20090506
  Serious: Yes (Other)
  Sender: FDA-Public Use
  Company Number: PHHY2008GB30128

PATIENT
  Age: 30 Year
  Sex: Male
  Weight: 132 kg

DRUGS (3)
  1. BACLOFEN [Suspect]
     Indication: BACK PAIN
     Dosage: 10 MG, BID
     Route: 048
     Dates: start: 20081008, end: 20081112
  2. ACETAMINOPHEN W/ CODEINE [Concomitant]
     Indication: BACK PAIN
     Dosage: 2 DF
     Route: 048
     Dates: start: 20080711
  3. OMEPRAZOLE [Concomitant]
     Indication: OESOPHAGITIS
     Dosage: 40 MG, QD
     Route: 048
     Dates: start: 20071215

REACTIONS (3)
  - AGITATION [None]
  - HALLUCINATION [None]
  - PARANOIA [None]
